FAERS Safety Report 5273915-2 (Version None)
Quarter: 2007Q1

REPORT INFORMATION
  Report Type: 
  Country: None (occurrence: None)
  Receive Date: 20070323
  Receipt Date: 20070312
  Transmission Date: 20070707
  Serious: Yes (Hospitalization)
  Sender: FDA-Public Use
  Company Number: PHNU2007DE00771

PATIENT
  Age: 52 Year
  Sex: Male

DRUGS (2)
  1. ZOMETA [Suspect]
     Indication: PROPHYLAXIS
     Dosage: 4 MG, QMO
     Route: 042
     Dates: start: 20030214
  2. ZOMETA [Suspect]
     Dosage: 4 MG, QMO
     Route: 042
     Dates: start: 20070208

REACTIONS (6)
  - BIOPSY SITE UNSPECIFIED ABNORMAL [None]
  - IMPAIRED HEALING [None]
  - OSTEITIS [None]
  - OSTEOMYELITIS BACTERIAL [None]
  - PURULENCE [None]
  - TOOTH EXTRACTION [None]
